FAERS Safety Report 12683666 (Version 1)
Quarter: 2016Q3

REPORT INFORMATION
  Report Type: Other
  Country: BR (occurrence: BR)
  Receive Date: 20160825
  Receipt Date: 20160825
  Transmission Date: 20161109
  Serious: Yes (Hospitalization, Other)
  Sender: FDA-Public Use
  Company Number: BR-SHIRE-BR201605004

PATIENT
  Sex: Male
  Weight: 44 kg

DRUGS (10)
  1. RISPERIDONE. [Concomitant]
     Active Substance: RISPERIDONE
     Indication: PSYCHOMOTOR HYPERACTIVITY
     Dosage: 0.5 DF (1/2 TABLET), 2X/DAY:BID (EVERY 12 HOURS)
     Route: 048
     Dates: start: 2007
  2. RISPERIDONE. [Concomitant]
     Active Substance: RISPERIDONE
     Indication: AGITATION
     Dosage: 1.5 DF (1 TABLET AND A HALF), 2X/DAY:BID
     Route: 065
  3. TEGRETOL [Concomitant]
     Active Substance: CARBAMAZEPINE
     Indication: SEIZURE
  4. TOFRANIL [Concomitant]
     Active Substance: IMIPRAMINE HYDROCHLORIDE
     Dosage: 1 DF, 1X/DAY:QD (AT NIGHT)
     Route: 065
     Dates: start: 2015
  5. RISPERIDONE. [Concomitant]
     Active Substance: RISPERIDONE
     Indication: SEIZURE
  6. TEGRETOL [Concomitant]
     Active Substance: CARBAMAZEPINE
     Indication: AGITATION
  7. ELAPRASE [Suspect]
     Active Substance: IDURSULFASE
     Indication: MUCOPOLYSACCHARIDOSIS II
     Dosage: 18 MG (3 AMPOULES), UNKNOWN
     Route: 041
     Dates: start: 2007
  8. TOFRANIL [Concomitant]
     Active Substance: IMIPRAMINE HYDROCHLORIDE
     Indication: AGITATION
     Dosage: 1 DF, 1X/DAY:QD
     Route: 065
     Dates: start: 2007
  9. TEGRETOL [Concomitant]
     Active Substance: CARBAMAZEPINE
     Indication: PSYCHOMOTOR HYPERACTIVITY
     Dosage: 15 ML, 2X/DAY:BID (EVERY 12 HOURS)
     Route: 065
  10. ELAPRASE [Suspect]
     Active Substance: IDURSULFASE
     Dosage: 24 MG, UNKNOWN
     Route: 041
     Dates: start: 2016

REACTIONS (9)
  - Drug administered to patient of inappropriate age [Recovered/Resolved]
  - Cardiac murmur [Unknown]
  - Therapeutic response unexpected [Unknown]
  - Condition aggravated [Unknown]
  - Adenoidal disorder [Unknown]
  - Dyspnoea [Recovered/Resolved with Sequelae]
  - Incorrect dose administered [Unknown]
  - Seizure [Unknown]
  - Tracheal disorder [Unknown]

NARRATIVE: CASE EVENT DATE: 2007
